FAERS Safety Report 16804293 (Version 2)
Quarter: 2020Q2

REPORT INFORMATION
  Report Type: Spontaneous
  Country: US (occurrence: US)
  Receive Date: 20190913
  Receipt Date: 20200403
  Transmission Date: 20200713
  Serious: No
  Sender: FDA-Public Use
  Company Number: US-GILEAD-2019-0428000

PATIENT
  Age: 44 Year
  Sex: Male

DRUGS (12)
  1. PREZCOBIX [Concomitant]
     Active Substance: COBICISTAT\DARUNAVIR ETHANOLATE
     Indication: PRODUCT USED FOR UNKNOWN INDICATION
     Dosage: 150 MG, QD
     Route: 048
  2. TRUVADA [Suspect]
     Active Substance: EMTRICITABINE\TENOFOVIR DISOPROXIL FUMARATE
     Indication: HIV INFECTION
     Dosage: 1 DOSAGE FORM, QD
     Route: 048
     Dates: start: 2004, end: 20190906
  3. ALPRAZOLAM. [Concomitant]
     Active Substance: ALPRAZOLAM
     Indication: ANXIETY
     Dosage: 1 DOSAGE FORM, QD, PRN
     Route: 048
  4. SILDENAFIL CITRATE. [Concomitant]
     Active Substance: SILDENAFIL CITRATE
     Indication: ERECTILE DYSFUNCTION
     Dosage: 1 DOSAGE FORM, PRN, 1 HOUR BEFORE SEX
     Route: 048
  5. KETOCONAZOLE. [Concomitant]
     Active Substance: KETOCONAZOLE
  6. TIVICAY [Concomitant]
     Active Substance: DOLUTEGRAVIR SODIUM
     Indication: HIV INFECTION
     Dosage: 1 DOSAGE FORM, QD
     Route: 048
  7. TRIAMCINOLONE ACETONIDE. [Concomitant]
     Active Substance: TRIAMCINOLONE ACETONIDE
  8. ULTRAM [Concomitant]
     Active Substance: TRAMADOL HYDROCHLORIDE
     Indication: PAIN
     Dosage: UNK
  9. DIFLUCAN [Concomitant]
     Active Substance: FLUCONAZOLE
  10. ATORVASTATIN CALCIUM. [Concomitant]
     Active Substance: ATORVASTATIN CALCIUM
     Dosage: 1 DOSAGE FORM, QD
     Route: 048
  11. VIRAMUNE [Concomitant]
     Active Substance: NEVIRAPINE
     Indication: HIV INFECTION
     Dosage: 200 MG, QD
     Route: 048
  12. ALDARA [Concomitant]
     Active Substance: IMIQUIMOD
     Indication: SKIN PAPILLOMA
     Dosage: 1 DOSAGE FORM, QD
     Route: 061

REACTIONS (10)
  - Abdominal pain upper [Not Recovered/Not Resolved]
  - Osteopenia [Not Recovered/Not Resolved]
  - Anxiety [Unknown]
  - Pain [Unknown]
  - Economic problem [Unknown]
  - Osteoma [Not Recovered/Not Resolved]
  - Peripheral swelling [Not Recovered/Not Resolved]
  - Anhedonia [Unknown]
  - Bone density decreased [Unknown]
  - Emotional distress [Unknown]

NARRATIVE: CASE EVENT DATE: 201009
